FAERS Safety Report 4873281-8 (Version None)
Quarter: 2006Q1

REPORT INFORMATION
  Report Type: 
  Country: None (occurrence: None)
  Receive Date: 20060103
  Receipt Date: 20051222
  Transmission Date: 20060701
  Serious: Yes (Death)
  Sender: FDA-Public Use
  Company Number: 05H-163-0304245-00

PATIENT
  Age: 52 Year
  Sex: Male

DRUGS (1)
  1. ATROPINE SULFATE [Suspect]
     Dates: start: 20051212, end: 20051212

REACTIONS (1)
  - DEVICE FAILURE [None]
